FAERS Safety Report 4524106-1 (Version None)
Quarter: 2004Q4

REPORT INFORMATION
  Report Type: 
  Country: None (occurrence: None)
  Receive Date: 20041119
  Receipt Date: 20040831
  Transmission Date: 20050328
  Serious: No
  Sender: FDA-Public Use
  Company Number: PHEH2004US08440

PATIENT
  Age: 61 Year
  Sex: Female

DRUGS (8)
  1. ZELNORM [Suspect]
     Indication: GASTROOESOPHAGEAL REFLUX DISEASE
     Dosage: 6 MG, BID, ORAL
     Route: 048
     Dates: start: 20040401, end: 20040701
  2. VIOXX [Concomitant]
  3. ZOLOFT [Concomitant]
  4. LEXAPRO [Concomitant]
  5. TOPAMAX [Concomitant]
  6. NEXIUM [Concomitant]
  7. MIRAPEX [Concomitant]
  8. ZOCOR [Concomitant]

REACTIONS (2)
  - MOUTH ULCERATION [None]
  - TONGUE ULCERATION [None]
